FAERS Safety Report 8698291 (Version 3)
Quarter: 2012Q4

REPORT INFORMATION
  Report Type: 
  Country: CN (occurrence: CN)
  Receive Date: 20120802
  Receipt Date: 20120831
  Transmission Date: 20130627
  Serious: Yes (Life-Threatening, Hospitalization)
  Sender: FDA-Public Use
  Company Number: PHHY2012CN057375

PATIENT
  Age: 20 Year
  Sex: Male

DRUGS (11)
  1. SEBIVO [Suspect]
     Indication: HEPATITIS B
     Dosage: 600 mg, QD
     Route: 048
     Dates: start: 201110, end: 20120703
  2. BENZBROMARONE [Concomitant]
  3. BETALOC [Concomitant]
  4. FUROSEMIDE [Concomitant]
  5. ANTISTERONE [Concomitant]
  6. MULTIVITAMINS [Concomitant]
     Dosage: 2 tablets each time, TID
  7. VITAMIN B COMPLEX [Concomitant]
     Dosage: UNK UKN, UNK
  8. METHYCOBAL [Concomitant]
     Dosage: 0.5 mg, TID
  9. ESSENTIALE FORTE [Concomitant]
     Dosage: 228 mg, TID
  10. VITAMIN B1 [Concomitant]
     Dosage: 10 mg, TID
     Dates: start: 20120702
  11. COENZYME Q10 [Concomitant]

REACTIONS (28)
  - Multi-organ disorder [Recovered/Resolved]
  - Guillain-Barre syndrome [Recovered/Resolved]
  - Glomerulonephritis proliferative [Recovered/Resolved]
  - Blood pressure decreased [Recovered/Resolved]
  - Vitamin B1 deficiency [Recovered/Resolved]
  - Pericardial effusion [Recovered/Resolved]
  - Nerve injury [Recovered/Resolved]
  - Pleural effusion [Recovered/Resolved]
  - Tricuspid valve incompetence [Recovered/Resolved]
  - Pulmonary hypertension [Recovered/Resolved]
  - Hypoxia [Recovered/Resolved]
  - Ascites [Recovered/Resolved]
  - Rhabdomyolysis [Recovered/Resolved]
  - Blood creatine phosphokinase increased [Recovered/Resolved]
  - Myoglobin blood increased [Recovered/Resolved]
  - Chest discomfort [Recovered/Resolved]
  - Dyspnoea [Recovered/Resolved]
  - Metabolic acidosis [Recovered/Resolved]
  - Oedema peripheral [Recovered/Resolved]
  - Renal failure acute [Recovered/Resolved]
  - Biopsy muscle abnormal [Recovered/Resolved]
  - Myositis [Recovered/Resolved]
  - Muscle atrophy [Recovered/Resolved]
  - Muscular weakness [Recovered/Resolved]
  - Gait disturbance [Recovered/Resolved]
  - Asthenia [Recovered/Resolved]
  - Fatigue [Recovered/Resolved]
  - Lactic acidosis [Recovered/Resolved]
